FAERS Safety Report 6807929-5 (Version None)
Quarter: 2010Q2

REPORT INFORMATION
  Report Type: 
  Country: None (occurrence: None)
  Receive Date: 20100629
  Receipt Date: 20090123
  Transmission Date: 20101027
  Serious: No
  Sender: FDA-Public Use
  Company Number: US-PFIZER INC-2009161714

PATIENT
  Sex: Male
  Weight: 98.9 kg

DRUGS (2)
  1. ZYVOX [Suspect]
     Indication: INFECTION
     Dosage: 600 MG, 2X/DAY
     Dates: start: 20090101, end: 20090101
  2. IBUPROFEN [Concomitant]

REACTIONS (3)
  - FAECES DISCOLOURED [None]
  - SALIVA DISCOLOURATION [None]
  - SINUS DISORDER [None]
